FAERS Safety Report 7249726-5 (Version None)
Quarter: 2011Q1

REPORT INFORMATION
  Report Type: 
  Country: None (occurrence: None)
  Receive Date: 20110128
  Receipt Date: 20110118
  Transmission Date: 20110831
  Serious: Yes (Hospitalization, Other)
  Sender: FDA-Public Use
  Company Number: GB-SANOFI-AVENTIS-2011SA003797

PATIENT
  Age: 58 Year
  Sex: Male

DRUGS (3)
  1. ALL OTHER THERAPEUTIC PRODUCTS [Concomitant]
  2. WARFARIN SODIUM [Concomitant]
  3. MULTAQ [Suspect]
     Route: 048
     Dates: start: 20101220

REACTIONS (1)
  - LOWER GASTROINTESTINAL HAEMORRHAGE [None]
